FAERS Safety Report 25792569 (Version 1)
Quarter: 2025Q3

REPORT INFORMATION
  Report Type: Spontaneous
  Country: UA (occurrence: UA)
  Receive Date: 20250911
  Receipt Date: 20250911
  Transmission Date: 20251021
  Serious: Yes (Death, Other)
  Sender: PFIZER
  Company Number: UA-PFIZER INC-202500178533

PATIENT
  Sex: Female
  Weight: 1.56 kg

DRUGS (1)
  1. SOLU-CORTEF [Suspect]
     Active Substance: HYDROCORTISONE SODIUM SUCCINATE
     Indication: Cholangiocarcinoma
     Dosage: 250 MG, 1X/DAY
     Route: 064

REACTIONS (3)
  - Foetal death [Fatal]
  - Premature baby death [Fatal]
  - Maternal exposure during pregnancy [Unknown]
